FAERS Safety Report 9105786 (Version 2)
Quarter: 2013Q2

REPORT INFORMATION
  Report Type: Spontaneous
  Country: FR (occurrence: FR)
  Receive Date: 20130221
  Receipt Date: 20130513
  Transmission Date: 20140414
  Serious: Yes (Other)
  Sender: FDA-Public Use
  Company Number: FR-GLAXOSMITHKLINE-B0868158A

PATIENT
  Age: 68 Year
  Sex: Female

DRUGS (12)
  1. AZANTAC [Suspect]
     Indication: PREMEDICATION
     Dosage: 50MG SINGLE DOSE
     Route: 042
     Dates: start: 20130124, end: 20130124
  2. SOLUMEDROL [Suspect]
     Indication: PREMEDICATION
     Dosage: 40MG SINGLE DOSE
     Route: 042
     Dates: start: 20130124, end: 20130124
  3. ZOPHREN [Concomitant]
     Indication: PREMEDICATION
     Dosage: 2MG SINGLE DOSE
     Route: 042
     Dates: start: 20130124, end: 20130124
  4. POLARAMINE [Concomitant]
     Indication: PREMEDICATION
     Dosage: 5MG SINGLE DOSE
     Route: 042
     Dates: start: 20130124, end: 20130124
  5. NACL [Concomitant]
     Indication: PREMEDICATION
     Dosage: 100ML SINGLE DOSE
     Route: 042
     Dates: start: 20130124, end: 20130124
  6. CORDARONE [Concomitant]
  7. XARELTO [Concomitant]
  8. LEVOTHYROX [Concomitant]
  9. CARDENSIEL [Concomitant]
  10. GLUCOPHAGE [Concomitant]
  11. INIPOMP [Concomitant]
  12. VITAMIN D [Concomitant]

REACTIONS (13)
  - Chills [Recovered/Resolved]
  - Hyperhidrosis [Recovered/Resolved]
  - Dyspnoea [Recovered/Resolved]
  - Laryngeal oedema [Recovered/Resolved]
  - Laryngospasm [Recovered/Resolved]
  - Erythema [Recovered/Resolved]
  - Pain [Recovered/Resolved]
  - Hypertension [Recovered/Resolved]
  - Tachypnoea [Recovered/Resolved]
  - Tachycardia [Recovered/Resolved]
  - Muscle spasms [Recovered/Resolved]
  - Tremor [Recovered/Resolved]
  - Drug hypersensitivity [Recovered/Resolved]
